FAERS Safety Report 4543623-1 (Version None)
Quarter: 2005Q1

REPORT INFORMATION
  Report Type: 
  Country: None (occurrence: None)
  Receive Date: 20050103
  Receipt Date: 20041222
  Transmission Date: 20050727
  Serious: Yes (Other)
  Sender: FDA-Public Use
  Company Number: NL-GLAXOSMITHKLINE-B0363028A

PATIENT
  Age: 62 Year
  Sex: Male

DRUGS (7)
  1. ATOVAQUONE + PROGUANIL HYDROCHLORIDE [Suspect]
     Indication: MALARIA PROPHYLAXIS
     Dosage: 1TAB PER DAY
     Dates: start: 20041107, end: 20041110
  2. OMEPRAZOLE [Concomitant]
     Dosage: 1CAP PER DAY
  3. ASCAL CARDIO [Concomitant]
     Dosage: 1SAC PER DAY
  4. SELEKTINE [Concomitant]
     Dosage: 1TAB PER DAY
  5. SELOKEEN ZOC [Concomitant]
     Dosage: 1TAB PER DAY
  6. MICARDIS HCT [Concomitant]
     Dosage: 1TAB PER DAY
  7. BACTRIMEL [Concomitant]
     Indication: DIARRHOEA
     Dates: start: 20041106, end: 20041108

REACTIONS (8)
  - ABDOMINAL PAIN [None]
  - ABDOMINAL PAIN UPPER [None]
  - ABNORMAL DREAMS [None]
  - HALLUCINATION [None]
  - HYPERHIDROSIS [None]
  - INITIAL INSOMNIA [None]
  - INSOMNIA [None]
  - VOMITING [None]
